FAERS Safety Report 25296386 (Version 4)
Quarter: 2025Q4

REPORT INFORMATION
  Report Type: Report from Study
  Country: US (occurrence: US)
  Receive Date: 20250511
  Receipt Date: 20251107
  Transmission Date: 20260118
  Serious: Yes (Hospitalization, Other)
  Sender: RECORDATI
  Company Number: US-ORPHANEU-2025003192

PATIENT
  Sex: Female
  Weight: 53.061 kg

DRUGS (24)
  1. ISTURISA [Suspect]
     Active Substance: OSILODROSTAT PHOSPHATE
     Indication: Pituitary-dependent Cushing^s syndrome
     Dosage: 1 MILLIGRAM, BID
     Route: 048
     Dates: start: 202008, end: 20250320
  2. SIGNIFOR LAR [Suspect]
     Active Substance: PASIREOTIDE PAMOATE
     Indication: Pituitary-dependent Cushing^s syndrome
     Dosage: 40 MG, QM, INJ KIT
     Route: 030
     Dates: start: 202008
  3. SIGNIFOR LAR [Suspect]
     Active Substance: PASIREOTIDE PAMOATE
     Dosage: 40 MG, QM, INJ KIT
     Route: 030
     Dates: start: 20250117, end: 2025
  4. ALBUTEROL SULFATE [Concomitant]
     Active Substance: ALBUTEROL SULFATE
     Indication: Product used for unknown indication
     Dosage: 2 PUFFS AS NEEDED
     Dates: start: 20180801
  5. ASPIRIN [Concomitant]
     Active Substance: ASPIRIN
     Indication: Product used for unknown indication
     Dosage: 81 MG, QD
     Route: 048
     Dates: start: 20180801
  6. ATORVASTATIN CALCIUM [Concomitant]
     Active Substance: ATORVASTATIN CALCIUM
     Indication: Product used for unknown indication
     Dosage: 10 MG DAILY
     Route: 048
     Dates: start: 20180801
  7. BUSPIRONE HCL [Concomitant]
     Active Substance: BUSPIRONE HYDROCHLORIDE
     Indication: Product used for unknown indication
     Dosage: 10 MG, BID, TABLET
     Route: 048
     Dates: start: 20220408
  8. ACETAMINOPHEN\BUTALBITAL\CAFFEINE [Concomitant]
     Active Substance: ACETAMINOPHEN\BUTALBITAL\CAFFEINE
     Indication: Product used for unknown indication
     Dosage: 50-500-40, Q4H, CAPSULE
     Route: 048
     Dates: start: 20240103
  9. CALCIUM [Concomitant]
     Active Substance: CALCIUM
     Indication: Product used for unknown indication
     Dosage: 1800 MG DAILY
     Route: 048
     Dates: start: 20180801
  10. CYCLOBENZAPRINE HYDROCHLORIDE [Concomitant]
     Active Substance: CYCLOBENZAPRINE HYDROCHLORIDE
     Indication: Product used for unknown indication
     Dosage: 10 MG, TID
     Route: 048
     Dates: start: 20180801
  11. DIPHENHYDRAMINE HYDROCHLORIDE [Concomitant]
     Active Substance: DIPHENHYDRAMINE HYDROCHLORIDE
     Indication: Product used for unknown indication
     Dosage: 25 MG, QD (HS) (SLEEP)
     Route: 048
     Dates: start: 20210101
  12. EFFEXOR [Concomitant]
     Active Substance: VENLAFAXINE HYDROCHLORIDE
     Indication: Product used for unknown indication
     Dosage: 75 MG, DAILY XR
     Route: 048
     Dates: start: 20180801
  13. ESGIC [Concomitant]
     Active Substance: ACETAMINOPHEN\BUTALBITAL\CAFFEINE
     Indication: Product used for unknown indication
     Dosage: 1 DOSAGE FORM, Q4H (1 TABLET)
     Route: 048
     Dates: start: 20180801
  14. FORTEO [Concomitant]
     Active Substance: TERIPARATIDE
     Indication: Product used for unknown indication
     Dosage: 600 (UNITS NOT REPORTED), DAILY
     Route: 058
     Dates: start: 20210215
  15. HYDROCORTISONE [Concomitant]
     Active Substance: HYDROCORTISONE
     Indication: Product used for unknown indication
     Dosage: 10 MG, BID, TABLET
     Route: 048
     Dates: start: 20231203
  16. IBUPROFEN [Concomitant]
     Active Substance: IBUPROFEN
     Indication: Product used for unknown indication
     Dosage: 200 MG, PRN (TABLET)
     Route: 048
     Dates: start: 20240103
  17. LAMISIL [Concomitant]
     Active Substance: TERBINAFINE HYDROCHLORIDE
     Indication: Product used for unknown indication
     Dosage: 250 MG, QD, TABLET
     Route: 048
     Dates: start: 20220411
  18. LEVOTHYROXINE SODIUM [Concomitant]
     Active Substance: LEVOTHYROXINE SODIUM
     Indication: Product used for unknown indication
     Dosage: 125 MICROGRAM, EVERY DAY
     Route: 048
     Dates: start: 20180801
  19. MAGNESIUM OXIDE [Concomitant]
     Active Substance: MAGNESIUM OXIDE
     Indication: Product used for unknown indication
     Dosage: 420 MG DAILY
     Route: 048
     Dates: start: 20180801
  20. PROMETHAZINE HYDROCHLORIDE [Concomitant]
     Active Substance: PROMETHAZINE HYDROCHLORIDE
     Indication: Product used for unknown indication
     Dosage: 25 MG, Q6H, TABLET
     Route: 048
     Dates: start: 20240103
  21. SENNA LAXATIVE [Concomitant]
     Active Substance: SENNOSIDES
     Indication: Product used for unknown indication
     Dosage: 8.6 MG, QD (HS)
     Route: 048
     Dates: start: 20210101
  22. TERIPARATIDE [Concomitant]
     Active Substance: TERIPARATIDE
     Indication: Product used for unknown indication
     Dosage: 620 (UNITS NOT REPORTED) DAILY RECOMBINANT
     Route: 058
     Dates: start: 20211004
  23. VITAMIN D3 [Concomitant]
     Active Substance: CHOLECALCIFEROL
     Indication: Product used for unknown indication
     Dosage: 50 MCG DAILY
     Route: 048
     Dates: start: 20180801
  24. Adult multivitamin [Concomitant]
     Indication: Product used for unknown indication
     Dosage: 1 DOSAGE FORM, QD
     Route: 048
     Dates: start: 20180801

REACTIONS (5)
  - Hypokinesia [Recovering/Resolving]
  - Hip fracture [Recovering/Resolving]
  - Fall [Recovered/Resolved with Sequelae]
  - Lethargy [Not Recovered/Not Resolved]
  - Therapeutic product effect prolonged [Recovered/Resolved]

NARRATIVE: CASE EVENT DATE: 20250101
